FAERS Safety Report 11214662 (Version 1)
Quarter: 2015Q2

REPORT INFORMATION
  Report Type: Spontaneous
  Country: US (occurrence: None)
  Receive Date: 20150622
  Receipt Date: 20150622
  Transmission Date: 20150821
  Serious: Yes (Life-Threatening, Hospitalization)
  Sender: FDA-Public Use
  Company Number: CC400260041

PATIENT
  Age: 71 Year
  Sex: Female

DRUGS (3)
  1. METOPROLOL [Concomitant]
     Active Substance: METOPROLOL
  2. THEOPHYLLINE [Suspect]
     Active Substance: THEOPHYLLINE ANHYDROUS
     Indication: SLEEP APNOEA SYNDROME
     Dosage: ORAL SUSTAINED RELEASE
     Route: 048
  3. ASPIRIN. [Concomitant]
     Active Substance: ASPIRIN

REACTIONS (12)
  - Somnolence [None]
  - Postictal state [None]
  - Generalised tonic-clonic seizure [None]
  - Atrial fibrillation [None]
  - Toxicity to various agents [None]
  - Heart rate increased [None]
  - Acute psychosis [None]
  - Hallucination, auditory [None]
  - Self injurious behaviour [None]
  - Laceration [None]
  - Suicide attempt [None]
  - Suicidal ideation [None]
